FAERS Safety Report 6755501-8 (Version None)
Quarter: 2010Q2

REPORT INFORMATION
  Report Type: 
  Country: None (occurrence: None)
  Receive Date: 20100524
  Receipt Date: 20100301
  Transmission Date: 20101027
  Serious: No
  Sender: FDA-Public Use
  Company Number: 008126

PATIENT
  Sex: Female
  Weight: 68.5 kg

DRUGS (5)
  1. CIMZIA [Suspect]
     Indication: CROHN'S DISEASE
     Dosage: (400MG SUBCUTANEOUS)
     Route: 058
     Dates: start: 20091001
  2. SYNTHROID [Concomitant]
  3. LOPERAMIDE [Concomitant]
  4. CARDIZEM [Concomitant]
  5. FUROSEMIDE [Concomitant]

REACTIONS (1)
  - OEDEMA PERIPHERAL [None]
